FAERS Safety Report 9695321 (Version 1)
Quarter: 2013Q4

REPORT INFORMATION
  Report Type: Spontaneous
  Country: AU (occurrence: AU)
  Receive Date: 20131119
  Receipt Date: 20131119
  Transmission Date: 20140711
  Serious: Yes (Other)
  Sender: FDA-Public Use
  Company Number: AU-ABBVIE-13P-008-1157703-00

PATIENT
  Sex: Female

DRUGS (1)
  1. EPILIM [Suspect]
     Indication: PRODUCT USED FOR UNKNOWN INDICATION

REACTIONS (9)
  - Hepatic steatosis [Unknown]
  - Hepatitis [Unknown]
  - Hepatomegaly [Unknown]
  - Hyperhidrosis [Unknown]
  - Jaundice [Unknown]
  - Lethargy [Unknown]
  - Nausea [Unknown]
  - Pyrexia [Unknown]
  - Vomiting [Unknown]
